FAERS Safety Report 12628595 (Version 1)
Quarter: 2016Q3

REPORT INFORMATION
  Report Type: Spontaneous
  Country: US (occurrence: None)
  Receive Date: 20160805
  Receipt Date: 20160805
  Transmission Date: 20161109
  Serious: Yes (Disabling)
  Sender: FDA-Public Use
  Company Number: None

PATIENT
  Age: 35 Year
  Sex: Male
  Weight: 90.72 kg

DRUGS (5)
  1. CPAP [Concomitant]
     Active Substance: DEVICE
  2. ABILIFY [Concomitant]
     Active Substance: ARIPIPRAZOLE
  3. EFFEXOR [Concomitant]
     Active Substance: VENLAFAXINE HYDROCHLORIDE
  4. NUVIGIL [Concomitant]
     Active Substance: ARMODAFINIL
  5. ARMODAFINIL. [Suspect]
     Active Substance: ARMODAFINIL
     Indication: SLEEP APNOEA SYNDROME
     Dosage: 1 TABLET(S) IN THE MORNING TAKEN BY MOUTH
     Route: 048
     Dates: start: 20160701, end: 20160730

REACTIONS (5)
  - Tremor [None]
  - Product substitution issue [None]
  - Loss of consciousness [None]
  - Dizziness [None]
  - Vision blurred [None]

NARRATIVE: CASE EVENT DATE: 20160713
